FAERS Safety Report 23248120 (Version 3)
Quarter: 2025Q4

REPORT INFORMATION
  Report Type: Report from Study
  Country: US (occurrence: US)
  Receive Date: 20231130
  Receipt Date: 20251030
  Transmission Date: 20260118
  Serious: Yes (Other)
  Sender: ABBVIE
  Company Number: US-ABBVIE-5385371

PATIENT
  Age: 61 Year
  Sex: Female
  Weight: 72.575 kg

DRUGS (7)
  1. RINVOQ [Suspect]
     Active Substance: UPADACITINIB
     Indication: Colitis ulcerative
     Dosage: FOR 8 WEEKS
     Route: 048
     Dates: start: 20220715, end: 20220909
  2. RINVOQ [Suspect]
     Active Substance: UPADACITINIB
     Indication: Colitis ulcerative
     Route: 048
     Dates: start: 20220910
  3. RINVOQ [Suspect]
     Active Substance: UPADACITINIB
     Indication: Colitis ulcerative
     Route: 048
     Dates: start: 202506
  4. CIMETIDINE [Concomitant]
     Active Substance: CIMETIDINE
     Indication: Dyspepsia
  5. CORTICOSTEROID NOS [Concomitant]
     Active Substance: CORTICOSTEROID NOS
     Indication: Product used for unknown indication
  6. PREDNISONE [Concomitant]
     Active Substance: PREDNISONE
     Indication: Product used for unknown indication
  7. PEPCID [Concomitant]
     Active Substance: FAMOTIDINE
     Indication: Product used for unknown indication

REACTIONS (15)
  - Femur fracture [Recovering/Resolving]
  - Exercise lack of [Unknown]
  - Arthralgia [Recovering/Resolving]
  - Joint injury [Recovering/Resolving]
  - Pain in extremity [Recovered/Resolved]
  - Spinal fracture [Recovering/Resolving]
  - Pain [Recovering/Resolving]
  - Limb injury [Unknown]
  - Fall [Recovered/Resolved]
  - Compression fracture [Recovering/Resolving]
  - Weight bearing difficulty [Unknown]
  - Walking aid user [Recovered/Resolved]
  - Loss of personal independence in daily activities [Unknown]
  - Pain in extremity [Not Recovered/Not Resolved]
  - Blood cholesterol increased [Recovering/Resolving]

NARRATIVE: CASE EVENT DATE: 20220801
